FAERS Safety Report 9362955 (Version 1)
Quarter: 2013Q2

REPORT INFORMATION
  Report Type: Report from Study
  Country: DE (occurrence: DE)
  Receive Date: 20130624
  Receipt Date: 20130624
  Transmission Date: 20140414
  Serious: Yes (Hospitalization, Other)
  Sender: FDA-Public Use
  Company Number: DE-ROCHE-1238031

PATIENT
  Sex: Female

DRUGS (4)
  1. RANIBIZUMAB [Suspect]
     Indication: AGE-RELATED MACULAR DEGENERATION
     Route: 050
     Dates: start: 20090826
  2. RANIBIZUMAB [Suspect]
     Route: 050
     Dates: start: 20121220
  3. RANIBIZUMAB [Suspect]
     Route: 050
     Dates: start: 20130124
  4. RANIBIZUMAB [Suspect]
     Route: 050
     Dates: start: 20130221, end: 20130221

REACTIONS (2)
  - Femoral neck fracture [Recovering/Resolving]
  - Injury [Unknown]
